FAERS Safety Report 9863421 (Version 1)
Quarter: 2014Q1

REPORT INFORMATION
  Report Type: Spontaneous
  Country: US (occurrence: US)
  Receive Date: 20140203
  Receipt Date: 20140203
  Transmission Date: 20141002
  Serious: Yes (Other)
  Sender: FDA-Public Use
  Company Number: US-GILEAD-2014-0093285

PATIENT
  Sex: Male

DRUGS (2)
  1. TRUVADA [Suspect]
     Indication: HEPATITIS B
     Dosage: 1 DF, UNK
     Route: 065
  2. TRUVADA [Suspect]
     Indication: OFF LABEL USE

REACTIONS (2)
  - Hip arthroplasty [Unknown]
  - Off label use [Recovered/Resolved]
